FAERS Safety Report 5013082-3 (Version None)
Quarter: 2006Q2

REPORT INFORMATION
  Report Type: 
  Country: None (occurrence: None)
  Receive Date: 20060530
  Receipt Date: 20060217
  Transmission Date: 20061013
  Serious: No
  Sender: FDA-Public Use
  Company Number: US-GLAXOSMITHKLINE-A0594145A

PATIENT
  Sex: Female

DRUGS (1)
  1. WELLBUTRIN XL [Suspect]
     Indication: DRUG USE FOR UNKNOWN INDICATION
     Route: 048
     Dates: start: 20060210

REACTIONS (5)
  - ABDOMINAL PAIN UPPER [None]
  - CONFUSIONAL STATE [None]
  - DIZZINESS [None]
  - HEART RATE INCREASED [None]
  - PARANOIA [None]
